FAERS Safety Report 11181795 (Version 2)
Quarter: 2015Q3

REPORT INFORMATION
  Report Type: Spontaneous
  Country: US (occurrence: None)
  Receive Date: 20150522
  Receipt Date: 20150820
  Transmission Date: 20151125
  Serious: No
  Sender: FDA-Public Use
  Company Number: PHEH2015US007585

PATIENT
  Age: 52 Year
  Sex: Female
  Weight: 97.7 kg

DRUGS (7)
  1. FOLIC ACID. [Concomitant]
     Active Substance: FOLIC ACID
  2. DICLOFENAC [Concomitant]
     Active Substance: DICLOFENAC
  3. COSENTYX [Suspect]
     Active Substance: SECUKINUMAB
     Indication: PSORIASIS
     Route: 058
     Dates: start: 20150331, end: 20150511
  4. HCTZ (HYDROCHLOROTHIAZIDE) [Concomitant]
     Active Substance: HYDROCHLOROTHIAZIDE
  5. OMEPRAZOLE. [Concomitant]
     Active Substance: OMEPRAZOLE
  6. COZAAR [Concomitant]
     Active Substance: LOSARTAN POTASSIUM
  7. LOSARTAN. [Concomitant]
     Active Substance: LOSARTAN

REACTIONS (3)
  - Peripheral swelling [None]
  - Dysphonia [None]
  - Glossodynia [None]

NARRATIVE: CASE EVENT DATE: 20150401
